FAERS Safety Report 6558734-9 (Version None)
Quarter: 2010Q1

REPORT INFORMATION
  Report Type: 
  Country: None (occurrence: None)
  Receive Date: 20100129
  Receipt Date: 20100120
  Transmission Date: 20100710
  Serious: Yes (Death)
  Sender: FDA-Public Use
  Company Number: US-PFIZER INC-2009316023

PATIENT
  Sex: Female

DRUGS (2)
  1. NORVASC [Suspect]
  2. LYRICA [Suspect]

REACTIONS (1)
  - DEATH [None]
